FAERS Safety Report 8743891 (Version 2)
Quarter: 2012Q4

REPORT INFORMATION
  Report Type: 
  Country: CA (occurrence: NL)
  Receive Date: 20120824
  Receipt Date: 20121123
  Transmission Date: 20130627
  Serious: Yes (Hospitalization)
  Sender: FDA-Public Use
  Company Number: NL-MERCK-1208NLD009414

PATIENT
  Age: 77 Year
  Sex: Male

DRUGS (2)
  1. SIMVASTATIN [Suspect]
     Dosage: 40 mg, UNK
     Route: 048
  2. ACENOCOUMAROL [Suspect]

REACTIONS (5)
  - Gastrointestinal haemorrhage [Unknown]
  - Drug administration error [Unknown]
  - Haemoglobin decreased [None]
  - International normalised ratio increased [None]
  - Wrong technique in drug usage process [None]
